FAERS Safety Report 19509009 (Version 5)
Quarter: 2022Q4

REPORT INFORMATION
  Report Type: Report from Study
  Country: JP (occurrence: JP)
  Receive Date: 20210708
  Receipt Date: 20221021
  Transmission Date: 20230112
  Serious: Yes (Death, Hospitalization, Other)
  Sender: FDA-Public Use
  Company Number: JP-BAUSCH-BL-2020-033976

PATIENT
  Age: 84 Year
  Sex: Female
  Weight: 39.1 kg

DRUGS (13)
  1. DEMSER [Suspect]
     Active Substance: METYROSINE
     Indication: Blood catecholamines increased
     Route: 048
     Dates: start: 20190403, end: 20190407
  2. DEMSER [Suspect]
     Active Substance: METYROSINE
     Route: 048
     Dates: start: 20190408, end: 20190412
  3. DEMSER [Suspect]
     Active Substance: METYROSINE
     Route: 048
     Dates: start: 20190413, end: 20190414
  4. DEMSER [Suspect]
     Active Substance: METYROSINE
     Dosage: DURATION: 10 MONTHS 28 DAYS
     Route: 048
     Dates: start: 20190415
  5. DEMSER [Suspect]
     Active Substance: METYROSINE
     Route: 048
     Dates: start: 20200314, end: 20200828
  6. DEMSER [Suspect]
     Active Substance: METYROSINE
     Dosage: DURATION: 5 MONTHS 15 DAYS
     Route: 048
     Dates: start: 20200314, end: 20200828
  7. DEMSER [Suspect]
     Active Substance: METYROSINE
     Route: 048
     Dates: start: 20200829
  8. DEMSER [Suspect]
     Active Substance: METYROSINE
     Dosage: DURATION: 4 MONTHS 27 DAYS
     Route: 048
     Dates: start: 20200903, end: 20210129
  9. DOXAZOSIN [Concomitant]
     Active Substance: DOXAZOSIN MESYLATE
     Indication: Product used for unknown indication
     Dates: start: 20190403, end: 20190413
  10. ASPIRIN [Concomitant]
     Active Substance: ASPIRIN
     Indication: Product used for unknown indication
  11. LANSOPRAZOLE [Concomitant]
     Active Substance: LANSOPRAZOLE
     Indication: Product used for unknown indication
  12. ALFACALCIDOL [Concomitant]
     Active Substance: ALFACALCIDOL
     Indication: Product used for unknown indication
  13. LINZESS [Concomitant]
     Active Substance: LINACLOTIDE
     Indication: Product used for unknown indication

REACTIONS (3)
  - Malignant neoplasm progression [Fatal]
  - Decreased appetite [Unknown]
  - Somnolence [Recovering/Resolving]

NARRATIVE: CASE EVENT DATE: 20190414
